FAERS Safety Report 7980864-5 (Version None)
Quarter: 2011Q4

REPORT INFORMATION
  Report Type: 
  Country: None (occurrence: None)
  Receive Date: 20111214
  Receipt Date: 20111203
  Transmission Date: 20120403
  Serious: Yes (Hospitalization, Other)
  Sender: FDA-Public Use
  Company Number: US-BAYER-2011-012045

PATIENT
  Age: 46 Year
  Sex: Female
  Weight: 73.923 kg

DRUGS (11)
  1. TRAMADOL HCL [Concomitant]
     Dosage: UNK UNK, PRN
  2. NEFAZODONE HCL [Concomitant]
     Dosage: UNK UNK, QD
     Route: 048
  3. YASMIN [Suspect]
     Indication: CONTRACEPTION
     Dosage: UNK
     Dates: start: 20030618, end: 20060416
  4. ATENOLOL [Concomitant]
     Dosage: 50 MG, QD
     Route: 048
  5. CALTRATE [CALCIUM CARBONATE] [Concomitant]
     Dosage: 1200 MG, QD
     Route: 048
  6. MULTI-VITAMIN [Concomitant]
     Dosage: UNK UNK, QD
     Route: 048
  7. LEVAQUIN [Concomitant]
  8. YASMIN [Suspect]
     Indication: MENSTRUATION IRREGULAR
  9. YASMIN [Suspect]
     Indication: DYSMENORRHOEA
  10. LEVOTHYROXINE SODIUM [Concomitant]
     Dosage: 100 ?G, QD
     Route: 048
  11. FEXOFENADINE [Concomitant]
     Dosage: 1 DF, QD
     Route: 048

REACTIONS (14)
  - PAIN [None]
  - TRAUMATIC LUNG INJURY [None]
  - DEPRESSION [None]
  - SLEEP APNOEA SYNDROME [None]
  - PULMONARY EMBOLISM [None]
  - ANXIETY [None]
  - FEAR [None]
  - FIBROMYALGIA [None]
  - DYSPNOEA [None]
  - STRESS [None]
  - BACK PAIN [None]
  - PAINFUL RESPIRATION [None]
  - SARCOIDOSIS [None]
  - EMOTIONAL DISTRESS [None]
